FAERS Safety Report 21544701 (Version 4)
Quarter: 2022Q4

REPORT INFORMATION
  Report Type: Report from Study
  Country: BE (occurrence: BE)
  Receive Date: 20221102
  Receipt Date: 20221221
  Transmission Date: 20230112
  Serious: Yes (Hospitalization, Other)
  Sender: FDA-Public Use
  Company Number: BE-GENMAB-2022-01185

PATIENT
  Age: 54 Year
  Sex: Female
  Weight: 50 kg

DRUGS (18)
  1. TISOTUMAB VEDOTIN [Suspect]
     Active Substance: TISOTUMAB VEDOTIN
     Indication: Cervix cancer metastatic
     Dosage: 2 MILLIGRAM/KILOGRAM, 1Q3W
     Route: 042
     Dates: start: 20221017
  2. PEMBROLIZUMAB [Suspect]
     Active Substance: PEMBROLIZUMAB
     Indication: Cervix cancer metastatic
     Dosage: 200 MILLIGRAM, 1Q3W
     Route: 042
     Dates: start: 20221017
  3. CARBOPLATIN [Suspect]
     Active Substance: CARBOPLATIN
     Indication: Cervix cancer metastatic
     Dosage: 5 AUC, 1Q3W
     Route: 042
     Dates: start: 20221017
  4. ASPIRIN [Concomitant]
     Active Substance: ASPIRIN
     Indication: Thrombosis prophylaxis
     Dosage: 80 MILLIGRAM, QD
     Route: 048
     Dates: start: 20221006
  5. CLOPIDOGREL [Concomitant]
     Active Substance: CLOPIDOGREL BISULFATE
     Indication: Thrombosis prophylaxis
     Dosage: 75 MILLIGRAM, QD
     Route: 048
     Dates: start: 20221006, end: 20221020
  6. ALPRAZOLAM [Concomitant]
     Active Substance: ALPRAZOLAM
     Indication: Anxiety
     Dosage: 0.25 MILLIGRAM, TID
     Route: 048
     Dates: start: 202107
  7. LORMETAZEPAM [Concomitant]
     Active Substance: LORMETAZEPAM
     Indication: Insomnia
     Dosage: 2 MILLIGRAM, QD
     Route: 048
     Dates: start: 202109
  8. ACETAMINOPHEN [Concomitant]
     Active Substance: ACETAMINOPHEN
     Indication: Dysuria
     Dosage: 1000 MILLIGRAM, PRN
     Route: 048
     Dates: start: 202109, end: 20221017
  9. ENOXAPARIN SODIUM [Concomitant]
     Active Substance: ENOXAPARIN SODIUM
     Indication: Thrombosis prophylaxis
     Dosage: 40 MILLIGRAM, QD
     Route: 058
     Dates: start: 20221006, end: 20221016
  10. IMODIUM [Concomitant]
     Active Substance: LOPERAMIDE HYDROCHLORIDE
     Indication: Diarrhoea
     Dosage: 2 MILLIGRAM, PRN
     Route: 048
     Dates: start: 20221018
  11. PANTOPRAZOLE SODIUM [Concomitant]
     Active Substance: PANTOPRAZOLE SODIUM
     Indication: Gastritis prophylaxis
     Dosage: 40 MILLIGRAM, QD
     Route: 042
     Dates: start: 20221024, end: 20221025
  12. PANTOPRAZOLE SODIUM [Concomitant]
     Active Substance: PANTOPRAZOLE SODIUM
     Indication: Gastritis
     Dosage: 20 MILLIGRAM, QD
     Route: 048
     Dates: start: 20221026
  13. IBUPROFEN [Concomitant]
     Active Substance: IBUPROFEN
     Indication: Injection site pain
     Dosage: 1 SACHET, BID
     Route: 048
     Dates: start: 20221027, end: 20221028
  14. MOVICOL [Concomitant]
     Active Substance: POLYETHYLENE GLYCOL 3350\POTASSIUM CHLORIDE\SODIUM BICARBONATE\SODIUM CHLORIDE
     Indication: Constipation
     Dosage: 1 SACHET, PRN
     Route: 048
     Dates: start: 202209
  15. ALOXI [Concomitant]
     Active Substance: PALONOSETRON HYDROCHLORIDE
     Indication: Premedication
     Dosage: 250 MICROGRAM, QD (BEFORE EVERY IP INFUSION)
     Route: 042
     Dates: start: 20221017
  16. AACIDEXAM [DEXAMETHASONE] [Concomitant]
     Indication: Premedication
     Dosage: 10 MILLIGRAM, BEFORE EVERY IP INFUSION
     Route: 042
     Dates: start: 20221017
  17. MEDROL [Concomitant]
     Active Substance: METHYLPREDNISOLONE
     Indication: Prophylaxis of nausea and vomiting
     Dosage: 32 MILLIGRAM, DAY 2 AND 3 AFTER EVERY IP INFUSION
     Route: 048
     Dates: start: 20221017
  18. INDERAL [Concomitant]
     Active Substance: PROPRANOLOL HYDROCHLORIDE
     Indication: Hyperthyroidism
     Dosage: 10 MILLIGRAM, BID
     Route: 048
     Dates: start: 20221130

REACTIONS (1)
  - Anaemia [Recovering/Resolving]

NARRATIVE: CASE EVENT DATE: 20221024
